FAERS Safety Report 7343296-9 (Version None)
Quarter: 2011Q1

REPORT INFORMATION
  Report Type: 
  Country: None (occurrence: None)
  Receive Date: 20110308
  Receipt Date: 20110308
  Transmission Date: 20110831
  Serious: Yes (Hospitalization)
  Sender: FDA-Public Use
  Company Number: None

PATIENT
  Age: 63 Year
  Sex: Male
  Weight: 115 kg

DRUGS (1)
  1. PIPERACILLIN AND TAZOBACTAM [Suspect]
     Indication: PYREXIA
     Dosage: 3.375 GM TID IV
     Route: 042
     Dates: start: 20101124, end: 20101126

REACTIONS (3)
  - BLOOD CREATININE INCREASED [None]
  - EOSINOPHIL COUNT INCREASED [None]
  - BLOOD UREA INCREASED [None]
